FAERS Safety Report 8407623-3 (Version None)
Quarter: 2012Q2

REPORT INFORMATION
  Report Type: 
  Country: None (occurrence: None)
  Receive Date: 20120604
  Receipt Date: 20120521
  Transmission Date: 20120825
  Serious: Yes (Other)
  Sender: FDA-Public Use
  Company Number: US-ENDO PHARMACEUTICALS INC.-OPCR20120148

PATIENT
  Sex: Female
  Weight: 69.916 kg

DRUGS (6)
  1. OPANA ER [Suspect]
     Indication: PAIN
     Route: 048
     Dates: start: 20120326, end: 20120420
  2. OPANA ER [Suspect]
     Indication: MIGRAINE
  3. ACTIQ [Concomitant]
     Indication: BREAKTHROUGH PAIN
     Dates: start: 20100817
  4. ACTIQ [Concomitant]
     Indication: HEADACHE
  5. OPANA ER [Suspect]
     Dosage: UNKNOWN
     Route: 048
     Dates: start: 20100817, end: 20110407
  6. OPANA ER [Suspect]
     Route: 048
     Dates: start: 20110408, end: 20120325

REACTIONS (4)
  - VOMITING [None]
  - ABDOMINAL DISCOMFORT [None]
  - DRUG DISPENSING ERROR [None]
  - DRUG EFFECT DECREASED [None]
